FAERS Safety Report 5319810-1 (Version None)
Quarter: 2007Q2

REPORT INFORMATION
  Report Type: 
  Country: None (occurrence: None)
  Receive Date: 20070509
  Receipt Date: 20070427
  Transmission Date: 20071010
  Serious: Yes (Other)
  Sender: FDA-Public Use
  Company Number: PHBS2007ES07491

PATIENT
  Age: 55 Year
  Sex: Female

DRUGS (2)
  1. FEMARA [Suspect]
     Dates: start: 20060601
  2. RADIOTHERAPY [Concomitant]

REACTIONS (8)
  - ABDOMINAL PAIN UPPER [None]
  - BREAST PAIN [None]
  - LOW DENSITY LIPOPROTEIN INCREASED [None]
  - MUCOSAL EROSION [None]
  - NAUSEA [None]
  - REFLUX OESOPHAGITIS [None]
  - VOMITING [None]
  - WEIGHT DECREASED [None]
